FAERS Safety Report 4837051-9 (Version None)
Quarter: 2005Q4

REPORT INFORMATION
  Report Type: 
  Country: None (occurrence: None)
  Receive Date: 20051121
  Receipt Date: 20051121
  Transmission Date: 20060501
  Serious: No
  Sender: FDA-Public Use
  Company Number: None

PATIENT
  Age: 18 Year
  Sex: Male

DRUGS (2)
  1. EFFEXOR XR [Suspect]
     Indication: AFFECTIVE DISORDER
     Dosage: 75 MG XR QD PO
     Route: 048
     Dates: start: 20051115
  2. EFFEXOR XR [Suspect]
     Indication: AFFECTIVE DISORDER
     Dosage: 75 MG XR QD PO
     Route: 048
     Dates: start: 20051116

REACTIONS (2)
  - BLOOD PRESSURE SYSTOLIC INCREASED [None]
  - DISCOMFORT [None]
